FAERS Safety Report 21606201 (Version 1)
Quarter: 2022Q4

REPORT INFORMATION
  Report Type: Spontaneous
  Country: US (occurrence: US)
  Receive Date: 20221117
  Receipt Date: 20221117
  Transmission Date: 20230113
  Serious: Yes (Other)
  Sender: FDA-Public Use
  Company Number: US-ABBVIE-4203799

PATIENT
  Sex: Female

DRUGS (2)
  1. DEPAKOTE [Suspect]
     Active Substance: DIVALPROEX SODIUM
     Indication: Product used for unknown indication
     Route: 048
  2. LEVAQUIN [Suspect]
     Active Substance: LEVOFLOXACIN
     Indication: Product used for unknown indication
     Route: 065

REACTIONS (7)
  - Relapsing-remitting multiple sclerosis [Unknown]
  - Drug hypersensitivity [Unknown]
  - Migraine [Unknown]
  - Drug hypersensitivity [Unknown]
  - Fatigue [Unknown]
  - Urticaria [Unknown]
  - Therapeutic product effect decreased [Unknown]
